FAERS Safety Report 25387558 (Version 2)
Quarter: 2025Q2

REPORT INFORMATION
  Report Type: Spontaneous
  Country: JP (occurrence: JP)
  Receive Date: 20250603
  Receipt Date: 20250628
  Transmission Date: 20250716
  Serious: No
  Sender: AMGEN
  Company Number: JP-AMGEN-JPNSP2025104401

PATIENT
  Age: 77 Year
  Sex: Female

DRUGS (1)
  1. EVENITY [Suspect]
     Active Substance: ROMOSOZUMAB-AQQG
     Indication: Osteoporosis
     Route: 058
     Dates: start: 202502

REACTIONS (2)
  - Back pain [Unknown]
  - Intervertebral disc calcification [Unknown]

NARRATIVE: CASE EVENT DATE: 20250101
